FAERS Safety Report 5825368-0 (Version None)
Quarter: 2008Q3

REPORT INFORMATION
  Report Type: 
  Country: None (occurrence: None)
  Receive Date: 20080728
  Receipt Date: 20080728
  Transmission Date: 20090109
  Serious: Yes (Death, Hospitalization)
  Sender: FDA-Public Use
  Company Number: None

PATIENT
  Age: 30 Year
  Sex: Female
  Weight: 90.7194 kg

DRUGS (1)
  1. TRAMADOL HCL [Suspect]
     Indication: PAIN
     Dates: start: 20080601

REACTIONS (5)
  - BLOOD PRESSURE IMMEASURABLE [None]
  - CONVULSION [None]
  - NERVOUS SYSTEM DISORDER [None]
  - OVERDOSE [None]
  - PULSE ABSENT [None]
